FAERS Safety Report 13639715 (Version 1)
Quarter: 2017Q2

REPORT INFORMATION
  Report Type: Spontaneous
  Country: US (occurrence: US)
  Receive Date: 20170609
  Receipt Date: 20170609
  Transmission Date: 20170830
  Serious: No
  Sender: FDA-Public Use
  Company Number: US-ROCHE-1274358

PATIENT
  Age: 69 Year
  Sex: Female

DRUGS (2)
  1. KLONOPIN [Suspect]
     Active Substance: CLONAZEPAM
     Indication: VERTIGO POSITIONAL
     Dosage: 2-4 MG Q MORNING AND EVENING AS NEEDED
     Route: 048
     Dates: start: 1997
  2. CLONAZEPAM. [Suspect]
     Active Substance: CLONAZEPAM
     Indication: VERTIGO POSITIONAL
     Route: 065

REACTIONS (5)
  - Wrong technique in product usage process [Unknown]
  - Dysphagia [Unknown]
  - Vertigo [Not Recovered/Not Resolved]
  - Amnesia [Recovered/Resolved]
  - Drug ineffective [Unknown]
